FAERS Safety Report 15178188 (Version 1)
Quarter: 2018Q3

REPORT INFORMATION
  Report Type: Spontaneous
  Country: IT (occurrence: IT)
  Receive Date: 20180721
  Receipt Date: 20180721
  Transmission Date: 20181010
  Serious: Yes (Other)
  Sender: FDA-Public Use
  Company Number: IT-ACCORD-069826

PATIENT
  Age: 73 Year
  Sex: Male

DRUGS (1)
  1. CISPLATIN. [Suspect]
     Active Substance: CISPLATIN
     Indication: MALIGNANT PALATE NEOPLASM
     Dosage: 30 MG/M2

REACTIONS (6)
  - Glossitis [Unknown]
  - Weight decreased [Unknown]
  - Oedema [Unknown]
  - Depression [Unknown]
  - Pain [Recovered/Resolved]
  - Stomatitis [Recovered/Resolved]
